FAERS Safety Report 25895161 (Version 1)
Quarter: 2025Q4

REPORT INFORMATION
  Report Type: Spontaneous
  Country: EU (occurrence: EU)
  Receive Date: 20251008
  Receipt Date: 20251008
  Transmission Date: 20260118
  Serious: Yes (Hospitalization, Other)
  Sender: AUROBINDO
  Company Number: EU-ASPEN-GLO2025IT008479

PATIENT
  Age: 60 Year
  Sex: Male

DRUGS (10)
  1. METOPROLOL [Suspect]
     Active Substance: METOPROLOL
     Indication: Cardiac failure
     Dosage: 200 MILLIGRAM, ONCE A DAY
     Route: 065
  2. METOPROLOL [Suspect]
     Active Substance: METOPROLOL
     Dosage: 100 MILLIGRAM, TWO TIMES A DAY
     Route: 065
  3. RIVAROXABAN [Suspect]
     Active Substance: RIVAROXABAN
     Indication: Cardiac failure
     Dosage: 20 MILLIGRAM, ONCE A DAY
     Route: 065
  4. FUROSEMIDE [Suspect]
     Active Substance: FUROSEMIDE
     Indication: Cardiac failure
     Dosage: 0.5 MILLIGRAM, ONCE A DAY
     Route: 065
  5. FUROSEMIDE [Suspect]
     Active Substance: FUROSEMIDE
     Dosage: 0.250 MILLIGRAM, TWO TIMES A DAY
     Route: 065
  6. DIGOXIN [Suspect]
     Active Substance: DIGOXIN
     Indication: Cardiac failure
     Dosage: 0.13 MILLIGRAM, ONCE A DAY
     Route: 065
  7. DIGOXIN [Suspect]
     Active Substance: DIGOXIN
     Dosage: 0.125 MILLIGRAM, ONCE A DAY
     Route: 065
  8. SACUBITRIL\VALSARTAN [Suspect]
     Active Substance: SACUBITRIL\VALSARTAN
     Indication: Cardiac failure
     Dosage: 2 DOSAGE FORM, ONCE A DAY (1 DOSAGE FORM, 2 DOSE DAILY, 49/51 MG)
     Route: 065
  9. SACUBITRIL\VALSARTAN [Suspect]
     Active Substance: SACUBITRIL\VALSARTAN
     Dosage: UNK, TWO TIMES A DAY (49/51 MG)
     Route: 065
  10. CANRENONE [Suspect]
     Active Substance: CANRENONE
     Indication: Cardiac failure
     Dosage: 100 MILLIGRAM, DAILY (? CP DAILY  )
     Route: 065

REACTIONS (1)
  - Drug ineffective [Unknown]
